FAERS Safety Report 23674478 (Version 4)
Quarter: 2024Q4

REPORT INFORMATION
  Report Type: Spontaneous
  Country: US (occurrence: US)
  Receive Date: 20240326
  Receipt Date: 20241204
  Transmission Date: 20250114
  Serious: Yes (Other)
  Sender: BRISTOL-MYERS SQUIBB COMPANY
  Company Number: US-BRISTOL-MYERS SQUIBB COMPANY-2024-047977

PATIENT
  Age: 71 Year
  Sex: Male

DRUGS (2)
  1. LENALIDOMIDE [Suspect]
     Active Substance: LENALIDOMIDE
     Indication: Plasma cell myeloma
     Dosage: TAKE 1 CAPSULE (25MG) BY MOUTH EVERY DAY ON DAYS 1-21 OF EACH 28 DAY CYCLE
     Route: 048
  2. LENALIDOMIDE [Suspect]
     Active Substance: LENALIDOMIDE
     Dosage: FREQUENCY: TAKE 1 CAPSULE (25MG) BY MOUTH DAILY EVERY 24 HOURS ON DAYS 1-21 OF EACH 28-DAY CYCLE
     Route: 048

REACTIONS (15)
  - Insurance issue [Unknown]
  - Therapy interrupted [Unknown]
  - Back pain [Unknown]
  - Decreased appetite [Unknown]
  - Neoplasm [Unknown]
  - Diabetes mellitus [Unknown]
  - Fatigue [Unknown]
  - Gait disturbance [Unknown]
  - Bone pain [Unknown]
  - Diarrhoea [Unknown]
  - Dysphagia [Unknown]
  - Arthralgia [Recovered/Resolved]
  - Diarrhoea [Recovered/Resolved]
  - Gastrointestinal infection [Recovered/Resolved]
  - Treatment noncompliance [Unknown]
